FAERS Safety Report 6339910-7 (Version None)
Quarter: 2009Q3

REPORT INFORMATION
  Report Type: 
  Country: None (occurrence: None)
  Receive Date: 20090903
  Receipt Date: 20090831
  Transmission Date: 20100115
  Serious: Yes (Hospitalization)
  Sender: FDA-Public Use
  Company Number: IT-TEVA-207694ISR

PATIENT
  Age: 28 Year
  Sex: Male

DRUGS (3)
  1. CARBAMAZEPINE [Suspect]
  2. HALOPERIDOL [Suspect]
     Indication: PSYCHOTIC DISORDER
  3. PHENOTHIAZINE DERIVATIVES [Suspect]
     Indication: PSYCHOTIC DISORDER

REACTIONS (1)
  - INTUSSUSCEPTION [None]
